FAERS Safety Report 5903861-X (Version None)
Quarter: 2008Q3

REPORT INFORMATION
  Report Type: 
  Country: None (occurrence: None)
  Receive Date: 20080930
  Receipt Date: 20080918
  Transmission Date: 20090109
  Serious: Yes (Hospitalization, Other)
  Sender: FDA-Public Use
  Company Number: US-ELI_LILLY_AND_COMPANY-US200809004359

PATIENT
  Sex: Female

DRUGS (5)
  1. FORTEO [Suspect]
     Indication: OSTEOPOROSIS
     Dates: start: 20080301
  2. SINGULAIR [Concomitant]
     Indication: NASAL CONGESTION
  3. ZANTAC [Concomitant]
  4. TYLENOL /USA/ [Concomitant]
  5. ADVIL LIQUI-GELS [Concomitant]

REACTIONS (7)
  - ASTHENIA [None]
  - DEHYDRATION [None]
  - DIARRHOEA [None]
  - FALL [None]
  - HERPES ZOSTER [None]
  - PANCREATITIS [None]
  - PNEUMONIA [None]
